FAERS Safety Report 6644074-6 (Version None)
Quarter: 2010Q1

REPORT INFORMATION
  Report Type: 
  Country: None (occurrence: None)
  Receive Date: 20100322
  Receipt Date: 20100308
  Transmission Date: 20100710
  Serious: Yes (Hospitalization, Other)
  Sender: FDA-Public Use
  Company Number: PHEH2008US02770

PATIENT
  Sex: Male
  Weight: 198 kg

DRUGS (18)
  1. ZOMETA [Suspect]
     Dosage: MONTHLY
     Dates: start: 20050107, end: 20070701
  2. NORVASC [Concomitant]
  3. VYTORIN [Concomitant]
  4. ACCUPRIL [Concomitant]
  5. CHEMOTHERAPEUTICS NOS [Concomitant]
  6. RADIATION THERAPY [Concomitant]
  7. DECADRON [Concomitant]
     Dosage: 4 MG BY MOUTH 3 TIMES DAILY
     Dates: start: 20010828
  8. ZOSYN [Concomitant]
  9. PERIDEX [Concomitant]
  10. DIFLUCAN [Concomitant]
  11. LEVAQUIN [Concomitant]
  12. NEULASTA [Concomitant]
  13. RITUXAN [Concomitant]
  14. METHYLPREDNISOLONE [Concomitant]
  15. SKELAXIN [Concomitant]
  16. CYCLOBENZAPRINE [Concomitant]
  17. OXYCODONE HCL [Concomitant]
  18. DEXAMETHASONE [Concomitant]

REACTIONS (22)
  - ABSCESS DRAINAGE [None]
  - ANXIETY [None]
  - BACK PAIN [None]
  - BONE DISORDER [None]
  - BONE PAIN [None]
  - CELLULITIS [None]
  - DEBRIDEMENT [None]
  - DENTURE WEARER [None]
  - INJURY [None]
  - LEUKOPLAKIA [None]
  - LICHEN PLANUS [None]
  - MOUTH ULCERATION [None]
  - NEPHROLITHIASIS [None]
  - ORAL HERPES [None]
  - OSTEOMYELITIS [None]
  - OSTEONECROSIS [None]
  - PAIN [None]
  - PAIN IN EXTREMITY [None]
  - SINUS DISORDER [None]
  - TOOTH EXTRACTION [None]
  - TOOTH INFECTION [None]
  - TOOTH REPAIR [None]
